FAERS Safety Report 4340169-0 (Version None)
Quarter: 2004Q1

REPORT INFORMATION
  Report Type: 
  Country: None (occurrence: None)
  Receive Date: 20040329
  Receipt Date: 20040204
  Transmission Date: 20041129
  Serious: No
  Sender: FDA-Public Use
  Company Number: 04P-163-0249326-00

PATIENT

DRUGS (1)
  1. HUMIRA [Suspect]
     Dosage: 40 MG, SUBCUTANEOUS
     Route: 058

REACTIONS (3)
  - PHARYNGOLARYNGEAL PAIN [None]
  - RHINORRHOEA [None]
  - SENSATION OF PRESSURE IN EAR [None]
